FAERS Safety Report 6842481-X (Version None)
Quarter: 2010Q3

REPORT INFORMATION
  Report Type: 
  Country: None (occurrence: None)
  Receive Date: 20100714
  Receipt Date: 20070729
  Transmission Date: 20110219
  Serious: Yes (Other)
  Sender: FDA-Public Use
  Company Number: US-PFIZER INC-2007065150

PATIENT
  Sex: Female
  Weight: 90.909 kg

DRUGS (1)
  1. CHANTIX [Suspect]
     Indication: SMOKING CESSATION THERAPY
     Dosage: EVERYDAY
     Dates: start: 20070501, end: 20070728

REACTIONS (4)
  - DIZZINESS [None]
  - TINNITUS [None]
  - VERTIGO [None]
  - VOMITING [None]
